FAERS Safety Report 17332109 (Version 1)
Quarter: 2020Q1

REPORT INFORMATION
  Report Type: Spontaneous
  Country: GB (occurrence: GB)
  Receive Date: 20200127
  Receipt Date: 20200127
  Transmission Date: 20200409
  Serious: Yes (Life-Threatening, Hospitalization)
  Sender: FDA-Public Use
  Company Number: GB-SUN PHARMACEUTICAL INDUSTRIES LTD-2020RR-234564

PATIENT
  Age: 46 Year
  Sex: Male
  Weight: 78.92 kg

DRUGS (4)
  1. COCODAMOL [Concomitant]
     Active Substance: ACETAMINOPHEN\CODEINE PHOSPHATE
     Indication: PRODUCT USED FOR UNKNOWN INDICATION
     Dosage: UNK
     Route: 065
  2. SERTRALINE [Suspect]
     Active Substance: SERTRALINE HYDROCHLORIDE
     Indication: DEPRESSION
     Dosage: 50 MG IN MORNING AND 100MG AT NIGHT
     Route: 048
     Dates: start: 20190901, end: 20191008
  3. XANAX [Concomitant]
     Active Substance: ALPRAZOLAM
     Indication: PRODUCT USED FOR UNKNOWN INDICATION
     Dosage: UNK
     Route: 065
  4. DIAZEPAM. [Concomitant]
     Active Substance: DIAZEPAM
     Indication: PRODUCT USED FOR UNKNOWN INDICATION
     Dosage: UNK
     Route: 065

REACTIONS (6)
  - Delusion [Recovered/Resolved with Sequelae]
  - Memory impairment [Unknown]
  - Withdrawal syndrome [Unknown]
  - Seizure [Recovered/Resolved with Sequelae]
  - Slow response to stimuli [Unknown]
  - Foaming at mouth [Recovered/Resolved with Sequelae]

NARRATIVE: CASE EVENT DATE: 20191008
